FAERS Safety Report 24166912 (Version 1)
Quarter: 2024Q3

REPORT INFORMATION
  Report Type: Spontaneous
  Country: US (occurrence: US)
  Receive Date: 20240802
  Receipt Date: 20240802
  Transmission Date: 20241016
  Serious: No
  Sender: ENDO
  Company Number: ENDB23-04457

PATIENT
  Age: 81 Year
  Sex: Male

DRUGS (2)
  1. EDEX [Suspect]
     Active Substance: ALPROSTADIL
     Indication: Erectile dysfunction
     Dosage: 20 MICROGRAM, UNKNOWN
     Route: 051
  2. EDEX [Suspect]
     Active Substance: ALPROSTADIL

REACTIONS (4)
  - Wound haemorrhage [Recovered/Resolved]
  - Device difficult to use [Unknown]
  - Needle issue [None]
  - Device delivery system issue [None]

NARRATIVE: CASE EVENT DATE: 20230901
